FAERS Safety Report 5050242-X (Version None)
Quarter: 2006Q2

REPORT INFORMATION
  Report Type: 
  Country: None (occurrence: None)
  Receive Date: 20060614
  Receipt Date: 20060221
  Transmission Date: 20061013
  Serious: Yes (Other)
  Sender: FDA-Public Use
  Company Number: 434632

PATIENT
  Age: 73 Year
  Sex: Female
  Weight: 26.7622 kg

DRUGS (3)
  1. BONIVA [Suspect]
     Indication: OSTEOPENIA
     Dosage: 150 MG 1 PER 1 MONTH ORAL
     Route: 048
     Dates: start: 20060111, end: 20060111
  2. MICARDIS [Concomitant]
  3. ZETIA [Concomitant]

REACTIONS (5)
  - ABDOMINAL PAIN UPPER [None]
  - DIARRHOEA [None]
  - FAECES PALE [None]
  - FREQUENT BOWEL MOVEMENTS [None]
  - HEPATIC PAIN [None]
